FAERS Safety Report 7655378-2 (Version None)
Quarter: 2011Q3

REPORT INFORMATION
  Report Type: 
  Country: None (occurrence: None)
  Receive Date: 20110729
  Receipt Date: 20110719
  Transmission Date: 20111222
  Serious: Yes (Other)
  Sender: FDA-Public Use
  Company Number: 2011GB0064

PATIENT
  Age: 60 Year
  Sex: Female

DRUGS (3)
  1. METOTREXATE (METHOTREXATE) [Concomitant]
  2. ANAKINRA (ANAKINRA) [Suspect]
     Indication: RHEUMATOID ARTHRITIS
     Dosage: (100 MG)
     Dates: start: 20020909, end: 20030115
  3. CYCLOSPORINE [Concomitant]

REACTIONS (3)
  - SKIN CANCER [None]
  - JOINT DISLOCATION [None]
  - NECK PAIN [None]
